FAERS Safety Report 13914576 (Version 1)
Quarter: 2017Q3

REPORT INFORMATION
  Report Type: Spontaneous
  Country: NI (occurrence: NI)
  Receive Date: 20170828
  Receipt Date: 20170828
  Transmission Date: 20171127
  Serious: Yes (Other)
  Sender: FDA-Public Use
  Company Number: NI-ABBVIE-17P-119-2080625-00

PATIENT

DRUGS (1)
  1. ULTANE [Suspect]
     Active Substance: SEVOFLURANE
     Indication: ANAESTHESIA
     Route: 065
     Dates: start: 20170819

REACTIONS (1)
  - Unwanted awareness during anaesthesia [Unknown]

NARRATIVE: CASE EVENT DATE: 20170819
